FAERS Safety Report 11052960 (Version 1)
Quarter: 2015Q2

REPORT INFORMATION
  Report Type: Report from Study
  Country: FR (occurrence: FR)
  Receive Date: 20150421
  Receipt Date: 20150421
  Transmission Date: 20150821
  Serious: Yes (Death, Life-Threatening, Hospitalization, Disabling, Other)
  Sender: FDA-Public Use
  Company Number: FR-TAKEDA-2015MPI002461

PATIENT

DRUGS (17)
  1. TIENAM [Concomitant]
     Active Substance: CILASTATIN SODIUM\IMIPENEM
     Dosage: UNK
     Route: 065
     Dates: start: 20120918, end: 20120927
  2. DOXORUBICIN [Suspect]
     Active Substance: DOXORUBICIN
     Dosage: UNK
     Route: 042
     Dates: start: 20120927, end: 20121005
  3. VELCADE [Suspect]
     Active Substance: BORTEZOMIB
     Dosage: UNK
     Route: 065
     Dates: start: 20120927, end: 20121005
  4. TEVAGRASTIM [Concomitant]
     Active Substance: FILGRASTIM
     Dosage: UNK
     Route: 065
     Dates: start: 20121006, end: 20121010
  5. TEVAGRASTIM [Concomitant]
     Active Substance: FILGRASTIM
     Dosage: UNK
     Route: 065
  6. ROCEPHIN [Concomitant]
     Active Substance: CEFTRIAXONE SODIUM
     Dosage: UNK
     Route: 065
     Dates: start: 20121018, end: 20121022
  7. DOXORUBICIN [Suspect]
     Active Substance: DOXORUBICIN
     Indication: PLASMA CELL MYELOMA
     Dosage: UNK
     Route: 042
     Dates: start: 20120906, end: 20120926
  8. TEVAGRASTIM [Concomitant]
     Active Substance: FILGRASTIM
     Dosage: UNK
     Route: 065
     Dates: start: 20120916, end: 20120922
  9. FORTUM                             /00559701/ [Concomitant]
     Active Substance: CEFTAZIDIME
     Dosage: UNK
     Route: 065
     Dates: start: 20120810, end: 201208
  10. VANCOMYCINE [Concomitant]
     Active Substance: VANCOMYCIN
     Dosage: UNK
     Route: 065
     Dates: start: 20120924, end: 20120930
  11. CARMUSTINE [Suspect]
     Active Substance: CARMUSTINE
     Dosage: UNK
     Route: 065
     Dates: start: 20120927, end: 20121005
  12. AREDIA [Concomitant]
     Active Substance: PAMIDRONATE DISODIUM
     Dosage: UNK
     Route: 065
     Dates: start: 20120601, end: 20120607
  13. OFLOCET                            /00731801/ [Concomitant]
     Active Substance: OFLOXACIN
     Dosage: UNK
     Route: 065
     Dates: start: 20120918, end: 20120927
  14. VELCADE [Suspect]
     Active Substance: BORTEZOMIB
     Indication: PLASMA CELL MYELOMA
     Dosage: UNK
     Route: 065
     Dates: start: 20120906, end: 20120926
  15. CARMUSTINE [Suspect]
     Active Substance: CARMUSTINE
     Indication: PLASMA CELL MYELOMA
     Dosage: UNK
     Route: 065
     Dates: start: 20120906, end: 20120926
  16. VANCOMYCINE [Concomitant]
     Active Substance: VANCOMYCIN
     Dosage: UNK
     Route: 065
     Dates: start: 20120810, end: 201208
  17. FLAGYL [Concomitant]
     Active Substance: METRONIDAZOLE\METRONIDAZOLE HYDROCHLORIDE
     Dosage: UNK
     Route: 065
     Dates: start: 201209, end: 20120924

REACTIONS (10)
  - Citrobacter infection [Unknown]
  - Somnolence [Unknown]
  - Pancytopenia [Recovered/Resolved]
  - Confusional state [Unknown]
  - Melaena [Unknown]
  - General physical health deterioration [Fatal]
  - Pulmonary sepsis [Unknown]
  - General physical health deterioration [Fatal]
  - Asthenia [Unknown]
  - Hyperthermia [Unknown]

NARRATIVE: CASE EVENT DATE: 20120914
